FAERS Safety Report 17238574 (Version 7)
Quarter: 2020Q4

REPORT INFORMATION
  Report Type: Report from Study
  Country: BE (occurrence: BE)
  Receive Date: 20200106
  Receipt Date: 20201201
  Transmission Date: 20210113
  Serious: Yes (Other)
  Sender: FDA-Public Use
  Company Number: BE-INCYTE CORPORATION-2019IN004633

PATIENT

DRUGS (10)
  1. VITAMIN D [ERGOCALCIFEROL] [Concomitant]
     Active Substance: ERGOCALCIFEROL
     Indication: PROPHYLAXIS
     Dosage: UNK (100000)
     Route: 065
     Dates: start: 20180115
  2. ASAFLOW [Concomitant]
     Active Substance: ASPIRIN
     Indication: THROMBOSIS PROPHYLAXIS
     Dosage: UNK (80)
     Route: 065
     Dates: start: 20120405
  3. UNI DIAMICRON [Concomitant]
     Active Substance: GLICLAZIDE
     Indication: TYPE 2 DIABETES MELLITUS
     Dosage: 90 OT
     Route: 065
     Dates: start: 20180703
  4. COZAAR [Concomitant]
     Active Substance: LOSARTAN POTASSIUM
     Indication: HYPERTENSION
     Dosage: 50
     Route: 065
     Dates: start: 20120315
  5. JARDIANCE [Concomitant]
     Active Substance: EMPAGLIFLOZIN
     Indication: TYPE 2 DIABETES MELLITUS
     Dosage: 25
     Route: 065
     Dates: start: 20180703
  6. ATORSTATINEG [Concomitant]
     Indication: HYPERTRIGLYCERIDAEMIA
     Dosage: UNK (20)
     Route: 065
     Dates: start: 20180327
  7. LIPANTHYLNANO [Concomitant]
     Active Substance: FENOFIBRATE
     Indication: DYSLIPIDAEMIA
     Dosage: UNK (145)
     Route: 065
     Dates: start: 20120315
  8. METFORMAX [Concomitant]
     Active Substance: METFORMIN HYDROCHLORIDE
     Indication: TYPE 2 DIABETES MELLITUS
     Dosage: 850 OT
     Route: 065
     Dates: start: 20130814
  9. JAKAVI [Suspect]
     Active Substance: RUXOLITINIB
     Indication: POLYCYTHAEMIA VERA
     Dosage: 20 OT
     Route: 048
     Dates: start: 20190116, end: 20190212
  10. JAKAVI [Suspect]
     Active Substance: RUXOLITINIB
     Dosage: 30 OT
     Route: 048
     Dates: start: 20190213, end: 201907

REACTIONS (15)
  - Drug ineffective [Recovered/Resolved]
  - Photosensitivity reaction [Not Recovered/Not Resolved]
  - Dermatitis acneiform [Not Recovered/Not Resolved]
  - Malignant melanoma in situ [Recovered/Resolved]
  - Second primary malignancy [Recovered/Resolved]
  - Cellulitis [Not Recovered/Not Resolved]
  - Hyperkeratosis [Recovered/Resolved]
  - Hyperkeratosis [Recovered/Resolved]
  - Vertigo [Recovered/Resolved]
  - Metastatic malignant melanoma [Not Recovered/Not Resolved]
  - Paraesthesia [Not Recovered/Not Resolved]
  - Diarrhoea [Not Recovered/Not Resolved]
  - Post procedural haemorrhage [Recovered/Resolved]
  - Nasopharyngitis [Recovered/Resolved]
  - Melanocytic naevus [Recovered/Resolved]

NARRATIVE: CASE EVENT DATE: 2019
